FAERS Safety Report 5880225-9 (Version None)
Quarter: 2008Q3

REPORT INFORMATION
  Report Type: 
  Country: None (occurrence: None)
  Receive Date: 20080912
  Receipt Date: 20080902
  Transmission Date: 20090109
  Serious: Yes (Other)
  Sender: FDA-Public Use
  Company Number: TR-ABBOTT-08P-161-0474344-00

PATIENT
  Age: 74 Year
  Sex: Male

DRUGS (5)
  1. WARFARIN SODIUM [Suspect]
     Indication: DRUG USE FOR UNKNOWN INDICATION
     Route: 065
  2. WARFARIN SODIUM [Suspect]
     Route: 065
  3. WARFARIN SODIUM [Suspect]
     Dosage: NOT REPORTED
     Route: 065
  4. WARFARIN SODIUM [Suspect]
     Route: 065
  5. MOXIFLOXACIN HCL [Interacting]
     Indication: PNEUMONIA

REACTIONS (4)
  - DRUG INTERACTION [None]
  - ECCHYMOSIS [None]
  - HAEMATURIA [None]
  - INTERNATIONAL NORMALISED RATIO INCREASED [None]
